FAERS Safety Report 7426191-6 (Version None)
Quarter: 2011Q2

REPORT INFORMATION
  Report Type: 
  Country: None (occurrence: None)
  Receive Date: 20110420
  Receipt Date: 20110418
  Transmission Date: 20111010
  Serious: Yes (Life-Threatening, Other)
  Sender: FDA-Public Use
  Company Number: PHHY2011US02851

PATIENT
  Sex: Female

DRUGS (12)
  1. MICRO-K [Concomitant]
     Indication: HYPERTENSION
     Dosage: 10 MG
  2. UNIRECTIC [Concomitant]
     Indication: HYPERTENSION
     Dosage: UNK
     Dates: start: 20070101
  3. POTASSIUM [Concomitant]
  4. NITROGLYCERIN [Concomitant]
     Indication: CHEST PAIN
  5. LEVOXYL [Concomitant]
     Indication: HYPERTHYROIDISM
     Dosage: 0.5 MG, QD
  6. VITAMIN D [Concomitant]
     Dosage: 4000 U, QD
  7. ASPIRIN [Concomitant]
     Dosage: 81 MG, QD
  8. ALLERGEN [Concomitant]
  9. PRILOSEC [Concomitant]
     Dosage: 20 MG, BID
  10. REGLAN [Concomitant]
     Dosage: 5 MG
  11. RECLAST [Suspect]
     Indication: OSTEOPOROSIS
     Dosage: 5 MG
     Route: 042
     Dates: start: 20101223
  12. TOPROL-XL [Concomitant]
     Indication: HYPERTENSION
     Dosage: 25 MG

REACTIONS (6)
  - FATIGUE [None]
  - MYALGIA [None]
  - BONE PAIN [None]
  - FEELING ABNORMAL [None]
  - NECK PAIN [None]
  - HEADACHE [None]
